FAERS Safety Report 8314866 (Version 5)
Quarter: 2016Q4

REPORT INFORMATION
  Report Type: Report from Study
  Country: CA (occurrence: CA)
  Receive Date: 20111229
  Receipt Date: 20161227
  Transmission Date: 20170207
  Serious: Yes (Death, Other)
  Sender: FDA-Public Use
  Company Number: CA-UCBSA-044079

PATIENT
  Age: 65 Year
  Sex: Female
  Weight: 75 kg

DRUGS (11)
  1. CERTOLIZUMAB PEGOL RA [Suspect]
     Active Substance: CERTOLIZUMAB PEGOL
     Indication: RHEUMATOID ARTHRITIS
     Dosage: 400 MG, EV 2 WEEKS(QOW)
     Route: 058
     Dates: start: 20100517, end: 20100614
  2. PAXIL [Concomitant]
     Active Substance: PAROXETINE HYDROCHLORIDE
  3. FOLIC ACID. [Concomitant]
     Active Substance: FOLIC ACID
     Indication: VITAMIN SUPPLEMENTATION
     Dosage: 1 MG, ONCE DAILY (QD)
     Route: 048
     Dates: start: 2007
  4. SULFASALAZINE. [Concomitant]
     Active Substance: SULFASALAZINE
     Indication: RHEUMATOID ARTHRITIS
     Dosage: 500 MG, 3X/DAY (TID)
     Route: 048
     Dates: start: 2009
  5. PLAVIX [Concomitant]
     Active Substance: CLOPIDOGREL BISULFATE
  6. LOSEC [Concomitant]
     Active Substance: OMEPRAZOLE
  7. DICLOFENAC SR [Concomitant]
     Indication: ANTIINFLAMMATORY THERAPY
     Dosage: 75 MG, 2X/DAY (BID)
     Route: 048
  8. CRESTOR [Concomitant]
     Active Substance: ROSUVASTATIN CALCIUM
  9. CERTOLIZUMAB PEGOL RA [Suspect]
     Active Substance: CERTOLIZUMAB PEGOL
     Dosage: 200 MG, EV 2 WEEKS(QOW)
     Route: 058
     Dates: start: 20100628, end: 201110
  10. MTX [Concomitant]
     Active Substance: METHOTREXATE SODIUM
     Indication: RHEUMATOID ARTHRITIS
     Dosage: 20 MG, WEEKLY (QW)
     Route: 048
     Dates: start: 2007
  11. AVAPRO [Concomitant]
     Active Substance: IRBESARTAN
     Indication: HYPERTENSION
     Dosage: 75 MG, ONCE DAILY (QD)
     Route: 048

REACTIONS (11)
  - Weight decreased [Unknown]
  - Vomiting [Not Recovered/Not Resolved]
  - Bladder disorder [Unknown]
  - Hepatocellular carcinoma [Unknown]
  - Dizziness [Unknown]
  - Cholangiocarcinoma [Fatal]
  - Diarrhoea [Not Recovered/Not Resolved]
  - Rheumatoid arthritis [Unknown]
  - Tinnitus [Unknown]
  - Pleural effusion [Unknown]
  - Influenza [Unknown]

NARRATIVE: CASE EVENT DATE: 20111012
